FAERS Safety Report 23438964 (Version 1)
Quarter: 2024Q1

REPORT INFORMATION
  Report Type: Spontaneous
  Country: US (occurrence: US)
  Receive Date: 20240124
  Receipt Date: 20240124
  Transmission Date: 20240410
  Serious: No
  Sender: FDA-Public Use
  Company Number: US-BIOGEN-2021BI00980808

PATIENT
  Age: 72 Year
  Sex: Female

DRUGS (3)
  1. TECFIDERA [Suspect]
     Active Substance: DIMETHYL FUMARATE
     Indication: Product used for unknown indication
     Route: 050
     Dates: start: 20201212
  2. TECFIDERA [Suspect]
     Active Substance: DIMETHYL FUMARATE
     Route: 050
     Dates: start: 202012, end: 20210307
  3. TECFIDERA [Suspect]
     Active Substance: DIMETHYL FUMARATE
     Route: 050
     Dates: start: 202012, end: 202102

REACTIONS (13)
  - Drug ineffective [Not Recovered/Not Resolved]
  - Illness [Not Recovered/Not Resolved]
  - Eye movement disorder [Not Recovered/Not Resolved]
  - Fatigue [Not Recovered/Not Resolved]
  - Lymphoedema [Not Recovered/Not Resolved]
  - Arthralgia [Unknown]
  - Visual impairment [Unknown]
  - Myalgia [Unknown]
  - Pain [Unknown]
  - Back pain [Recovered/Resolved]
  - Abdominal discomfort [Recovered/Resolved]
  - Rash [Unknown]
  - Pruritus [Unknown]

NARRATIVE: CASE EVENT DATE: 20201201
